FAERS Safety Report 8856563 (Version 1)
Quarter: 2012Q4

REPORT INFORMATION
  Report Type: Spontaneous
  Country: US (occurrence: None)
  Receive Date: 20121018
  Receipt Date: 20121018
  Transmission Date: 20130627
  Serious: Yes (Hospitalization)
  Sender: FDA-Public Use
  Company Number: DKLU1085203

PATIENT
  Age: 6 Month

DRUGS (4)
  1. SABRIL [Suspect]
     Indication: EPILEPSY
     Route: 048
     Dates: start: 20121001
  2. SABRIL [Suspect]
     Indication: EPILEPSY
     Route: 048
  3. CLONAZEPAM (CLONAZEPAM) [Concomitant]
  4. DEPAKOTE (VALPROATE SEMISODIUM) [Concomitant]

REACTIONS (1)
  - Feeling abnormal [None]
